FAERS Safety Report 7493945-X (Version None)
Quarter: 2011Q2

REPORT INFORMATION
  Report Type: 
  Country: None (occurrence: None)
  Receive Date: 20110520
  Receipt Date: 20110516
  Transmission Date: 20111010
  Serious: Yes (Other)
  Sender: FDA-Public Use
  Company Number: US-PFIZER INC-2011104789

PATIENT
  Age: 2 Year
  Sex: Male
  Weight: 12.698 kg

DRUGS (1)
  1. DIMETAPP COLD AND ALLERGY [Suspect]
     Indication: SEASONAL ALLERGY
     Dosage: UNK
     Route: 048
     Dates: start: 20110516

REACTIONS (2)
  - OFF LABEL USE [None]
  - URTICARIA [None]
